FAERS Safety Report 5719964-9 (Version None)
Quarter: 2008Q2

REPORT INFORMATION
  Report Type: 
  Country: None (occurrence: None)
  Receive Date: 20080428
  Receipt Date: 20070330
  Transmission Date: 20081010
  Serious: No
  Sender: FDA-Public Use
  Company Number: US-AMGEN-US217503

PATIENT
  Sex: Male
  Weight: 71.5 kg

DRUGS (8)
  1. SENSIPAR [Suspect]
     Indication: HYPERPARATHYROIDISM SECONDARY
     Route: 048
     Dates: start: 20060824
  2. SENSIPAR [Suspect]
     Route: 048
     Dates: start: 20061106
  3. SENSIPAR [Suspect]
     Route: 048
     Dates: start: 20061219
  4. SENSIPAR [Suspect]
     Route: 048
     Dates: start: 20070301
  5. ZEMPLAR [Concomitant]
     Route: 065
     Dates: start: 20061017, end: 20061115
  6. PHOSLO [Concomitant]
     Route: 065
     Dates: start: 20060808, end: 20061028
  7. RENAGEL [Concomitant]
     Route: 065
     Dates: start: 20060718, end: 20061227
  8. NITROGLYCERIN [Concomitant]
     Route: 065
     Dates: start: 20061019, end: 20061019

REACTIONS (1)
  - PARAESTHESIA [None]
